FAERS Safety Report 21994202 (Version 1)
Quarter: 2023Q1

REPORT INFORMATION
  Report Type: Spontaneous
  Country: SE (occurrence: SE)
  Receive Date: 20230215
  Receipt Date: 20230215
  Transmission Date: 20230417
  Serious: Yes (Other)
  Sender: FDA-Public Use
  Company Number: None

PATIENT
  Age: 59 Year
  Sex: Male
  Weight: 90 kg

DRUGS (2)
  1. MIRTAZAPINE [Suspect]
     Active Substance: MIRTAZAPINE
     Indication: Sleep disorder
     Dosage: 15 MG 1 TABLET 1-1/5 HOURS BEFORE BEDTIME, MIRTAZAPINE ACTAVIS 15 MG, FREQUENCY TIME : 1 DAY, DURATI
     Dates: start: 20210611, end: 20210615
  2. MIRTAZAPINE [Suspect]
     Active Substance: MIRTAZAPINE
     Indication: Depression
     Dosage: MIRTAZAPINE ACTAVIS 15 MG

REACTIONS (6)
  - Tunnel vision [Recovered/Resolved]
  - Hangover [Recovered/Resolved]
  - Dry mouth [Recovered/Resolved]
  - Feeling drunk [Recovered/Resolved]
  - Dysarthria [Recovered/Resolved]
  - Formication [Recovered/Resolved]

NARRATIVE: CASE EVENT DATE: 20210611
